FAERS Safety Report 12116475 (Version 2)
Quarter: 2016Q1

REPORT INFORMATION
  Report Type: Spontaneous
  Country: US (occurrence: US)
  Receive Date: 20160225
  Receipt Date: 20160325
  Transmission Date: 20160526
  Serious: Yes (Other)
  Sender: FDA-Public Use
  Company Number: US-TEVA-637286USA

PATIENT
  Age: 54 Year
  Sex: Female

DRUGS (7)
  1. TOPAMAX [Concomitant]
     Active Substance: TOPIRAMATE
  2. PROCARDIA [Concomitant]
     Active Substance: NIFEDIPINE
  3. IMITREX [Concomitant]
     Active Substance: SUMATRIPTAN SUCCINATE
  4. ADVAIR HFA [Concomitant]
     Active Substance: FLUTICASONE PROPIONATE\SALMETEROL XINAFOATE
  5. DEXILANT [Concomitant]
     Active Substance: DEXLANSOPRAZOLE
  6. ZECUITY [Suspect]
     Active Substance: SUMATRIPTAN SUCCINATE
     Dosage: 6.5 MG / 4 HOURS
     Route: 062
  7. SINGULAIR [Concomitant]
     Active Substance: MONTELUKAST SODIUM

REACTIONS (8)
  - Drug effect delayed [Unknown]
  - Sunburn [Unknown]
  - Application site swelling [Unknown]
  - Application site erythema [Unknown]
  - Application site pain [Unknown]
  - Application site rash [Recovered/Resolved]
  - Application site pruritus [Unknown]
  - Application site urticaria [Unknown]

NARRATIVE: CASE EVENT DATE: 20151215
